FAERS Safety Report 15324910 (Version 1)
Quarter: 2018Q3

REPORT INFORMATION
  Report Type: Spontaneous
  Country: US (occurrence: US)
  Receive Date: 20180822
  Receipt Date: 20180822
  Transmission Date: 20181010
  Serious: Yes (Other)
  Sender: FDA-Public Use
  Company Number: None

PATIENT
  Age: 4 Year
  Sex: Female
  Weight: 16.65 kg

DRUGS (3)
  1. ZYRTEC [Concomitant]
     Active Substance: CETIRIZINE HYDROCHLORIDE
  2. DYMISTA [Concomitant]
     Active Substance: AZELASTINE HYDROCHLORIDE\FLUTICASONE PROPIONATE
  3. SINGULAIR [Suspect]
     Active Substance: MONTELUKAST SODIUM
     Indication: MULTIPLE ALLERGIES
     Dosage: ?          QUANTITY:1 TABLET(S);?
     Route: 048
     Dates: start: 20170206, end: 20180820

REACTIONS (10)
  - Thinking abnormal [None]
  - Social avoidant behaviour [None]
  - Nightmare [None]
  - Sleep disorder [None]
  - Fear of death [None]
  - Anxiety [None]
  - Depression [None]
  - Personality change [None]
  - Emotional disorder [None]
  - Social anxiety disorder [None]

NARRATIVE: CASE EVENT DATE: 20180121
